FAERS Safety Report 6336812-7 (Version None)
Quarter: 2009Q3

REPORT INFORMATION
  Report Type: 
  Country: None (occurrence: None)
  Receive Date: 20090901
  Receipt Date: 20090827
  Transmission Date: 20100115
  Serious: Yes (Death)
  Sender: FDA-Public Use
  Company Number: AE-ASTRAZENECA-2009SE10284

PATIENT
  Age: 45 Year
  Sex: Female

DRUGS (7)
  1. SEROQUEL [Suspect]
     Route: 048
     Dates: start: 20081002
  2. SEROQUEL [Suspect]
     Route: 048
     Dates: start: 20090716
  3. CELEXA [Concomitant]
  4. CLONOPIN [Concomitant]
  5. PROTONIX [Concomitant]
  6. AMBIEN [Concomitant]
  7. TRAZODONE [Concomitant]

REACTIONS (1)
  - COMPLETED SUICIDE [None]
